FAERS Safety Report 14302729 (Version 1)
Quarter: 2017Q4

REPORT INFORMATION
  Report Type: Report from Study
  Country: US (occurrence: US)
  Receive Date: 20171219
  Receipt Date: 20171219
  Transmission Date: 20180321
  Serious: Yes (Death, Other)
  Sender: FDA-Public Use
  Company Number: US-TAKEDA-2017TUS026413

PATIENT
  Sex: Female
  Weight: 79.37 kg

DRUGS (2)
  1. TYLENOL [Concomitant]
     Active Substance: ACETAMINOPHEN
     Dosage: UNK
     Route: 065
  2. RAMELTEON [Suspect]
     Active Substance: RAMELTEON
     Indication: SLEEP DISORDER
     Dosage: 8 MG, QD
     Route: 048

REACTIONS (7)
  - Fall [Unknown]
  - Weight decreased [Unknown]
  - Pneumonia [Fatal]
  - Lower limb fracture [Unknown]
  - Bronchitis [Unknown]
  - Respiratory tract infection fungal [Unknown]
  - Gastric cancer [Recovered/Resolved]
